FAERS Safety Report 6137899-7 (Version None)
Quarter: 2009Q1

REPORT INFORMATION
  Report Type: 
  Country: None (occurrence: None)
  Receive Date: 20090327
  Receipt Date: 20090317
  Transmission Date: 20090719
  Serious: Yes (Other)
  Sender: FDA-Public Use
  Company Number: POMP-1000461

PATIENT
  Age: 3 Year
  Sex: Male
  Weight: 17 kg

DRUGS (4)
  1. MYOZYME [Suspect]
     Indication: GLYCOGEN STORAGE DISEASE TYPE II
     Dosage: 350 MG, Q2W, INTRAVENOUS
     Route: 042
     Dates: start: 20081001
  2. BENADRYL [Concomitant]
  3. ACETAMINOPHEN [Concomitant]
  4. DECADRON [Concomitant]

REACTIONS (14)
  - AGITATION [None]
  - ANXIETY [None]
  - BLOOD PRESSURE DECREASED [None]
  - BRONCHOSPASM [None]
  - CYANOSIS [None]
  - FATIGUE [None]
  - FLUSHING [None]
  - HEART RATE INCREASED [None]
  - HYPOXIA [None]
  - INFUSION RELATED REACTION [None]
  - IRRITABILITY [None]
  - OXYGEN SATURATION DECREASED [None]
  - RESPIRATORY RATE INCREASED [None]
  - TACHYCARDIA [None]
